FAERS Safety Report 24276935 (Version 1)
Quarter: 2024Q3

REPORT INFORMATION
  Report Type: Spontaneous
  Country: DE (occurrence: DE)
  Receive Date: 20240903
  Receipt Date: 20240903
  Transmission Date: 20241017
  Serious: Yes (Other)
  Sender: NOVARTIS
  Company Number: DE-002147023-NVSC2024DE166720

PATIENT
  Age: 33 Year
  Sex: Female

DRUGS (6)
  1. CARBAMAZEPINE [Suspect]
     Active Substance: CARBAMAZEPINE
     Indication: Epilepsy
     Dosage: 600 MG, BID (MORNING AND EVENING)
     Route: 065
  2. CARBAMAZEPINE [Suspect]
     Active Substance: CARBAMAZEPINE
     Dosage: 500 MG, BID (1-0-1)
     Route: 065
     Dates: start: 2012
  3. CARBAMAZEPINE [Suspect]
     Active Substance: CARBAMAZEPINE
     Dosage: 200 MG, BID (1-0-1)
     Route: 065
     Dates: start: 202408
  4. CARBAMAZEPINE [Suspect]
     Active Substance: CARBAMAZEPINE
     Dosage: 400 MG, BID (1-0-1)
     Route: 065
     Dates: start: 202408
  5. TOPAMAX [Concomitant]
     Active Substance: TOPIRAMATE
     Indication: Product used for unknown indication
     Dosage: UNK
     Route: 065
  6. CLOBAZAM [Concomitant]
     Active Substance: CLOBAZAM
     Indication: Product used for unknown indication
     Dosage: UNK
     Route: 065

REACTIONS (14)
  - Seizure [Unknown]
  - Drug resistance [Unknown]
  - Visual impairment [Unknown]
  - Back disorder [Unknown]
  - Muscle spasticity [Unknown]
  - Facial discomfort [Unknown]
  - Limb discomfort [Unknown]
  - Histamine intolerance [Unknown]
  - Intestinal barrier dysfunction [Unknown]
  - Gamma-glutamyltransferase increased [Unknown]
  - Dizziness [Unknown]
  - Speech disorder [Unknown]
  - Muscle spasms [Unknown]
  - Headache [Unknown]
